FAERS Safety Report 4282132-4 (Version None)
Quarter: 2004Q1

REPORT INFORMATION
  Report Type: 
  Country: None (occurrence: None)
  Receive Date: 20040130
  Receipt Date: 20031030
  Transmission Date: 20041129
  Serious: No
  Sender: FDA-Public Use
  Company Number: US-BRISTOL-MYERS SQUIBB COMPANY-12422796

PATIENT
  Age: 91 Year
  Sex: Male
  Weight: 77 kg

DRUGS (1)
  1. TRAZODONE HCL [Suspect]
     Indication: INSOMNIA
     Dosage: DURATION: FEW YEARS

REACTIONS (2)
  - GINGIVAL PAIN [None]
  - GINGIVAL SWELLING [None]
